FAERS Safety Report 21612649 (Version 2)
Quarter: 2022Q4

REPORT INFORMATION
  Report Type: Other
  Country: CH (occurrence: None)
  Receive Date: 20221118
  Receipt Date: 20221201
  Transmission Date: 20230112
  Serious: Yes (Death, Life-Threatening, Hospitalization)
  Sender: FDA-Public Use
  Company Number: CH-ROCHE-3110648

PATIENT
  Age: 62 Year
  Sex: Female

DRUGS (2)
  1. OCREVUS [Suspect]
     Active Substance: OCRELIZUMAB
     Indication: Multiple sclerosis
     Route: 042
     Dates: start: 20180802, end: 20220601
  2. OCREVUS [Suspect]
     Active Substance: OCRELIZUMAB
     Route: 042

REACTIONS (2)
  - Pancreatic carcinoma metastatic [Unknown]
  - Death [Fatal]

NARRATIVE: CASE EVENT DATE: 20220101
